FAERS Safety Report 8556319-6 (Version None)
Quarter: 2012Q3

REPORT INFORMATION
  Report Type: 
  Country: None (occurrence: None)
  Receive Date: 20120801
  Receipt Date: 20120725
  Transmission Date: 20120928
  Serious: Yes (Hospitalization, Other)
  Sender: FDA-Public Use
  Company Number: JP-JNJFOC-20120705214

PATIENT
  Age: 81 Year
  Sex: Female

DRUGS (17)
  1. SIMVASTATIN [Concomitant]
     Route: 048
  2. ALOSENN [Concomitant]
     Route: 048
  3. METOPROLOL TARTRATE [Concomitant]
     Route: 048
     Dates: end: 20120123
  4. VITAMIN B12 [Concomitant]
     Route: 065
  5. TRAMADOL HCL [Suspect]
     Indication: PAIN
     Dosage: 1 PER 1 DAY
     Route: 048
     Dates: start: 20111201, end: 20120113
  6. CELEBREX [Concomitant]
     Route: 048
  7. ALLOPURINOL [Concomitant]
     Route: 048
  8. TAURINE [Concomitant]
     Route: 048
  9. ASPIRIN [Concomitant]
     Route: 048
     Dates: end: 20120123
  10. SIGMART [Concomitant]
     Route: 065
     Dates: end: 20120123
  11. PURSENNID [Concomitant]
     Route: 048
  12. LOSARTAN POTASSIUM [Concomitant]
     Route: 048
  13. RABEPRAZOLE SODIUM [Concomitant]
     Route: 048
  14. ISOSORBIDE MONONITRATE [Suspect]
     Indication: PRODUCT USED FOR UNKNOWN INDICATION
     Route: 048
     Dates: end: 20120123
  15. LYRICA [Concomitant]
     Route: 048
     Dates: end: 20120123
  16. RIZE [Concomitant]
     Route: 048
     Dates: end: 20120123
  17. MARZULENE [Concomitant]
     Route: 048

REACTIONS (2)
  - CONSTIPATION [None]
  - INTESTINAL OBSTRUCTION [None]
